FAERS Safety Report 4600479-6 (Version None)
Quarter: 2005Q1

REPORT INFORMATION
  Report Type: 
  Country: None (occurrence: None)
  Receive Date: 20050301
  Receipt Date: 20050224
  Transmission Date: 20050727
  Serious: Yes (Hospitalization)
  Sender: FDA-Public Use
  Company Number: 2004-02991

PATIENT
  Age: 78 Year
  Sex: Male

DRUGS (1)
  1. IMMUCYST           (BCG - IT (CONNAUGHT [Suspect]
     Indication: BLADDER CANCER
     Route: 043
     Dates: start: 20040715

REACTIONS (9)
  - BOVINE TUBERCULOSIS [None]
  - CACHEXIA [None]
  - CHOLESTASIS [None]
  - GRANULOMATOUS LIVER DISEASE [None]
  - HISTIOCYTOSIS HAEMATOPHAGIC [None]
  - ORAL INTAKE REDUCED [None]
  - PLATELET COUNT DECREASED [None]
  - PYREXIA [None]
  - RENAL FAILURE [None]
